FAERS Safety Report 23465441 (Version 5)
Quarter: 2024Q2

REPORT INFORMATION
  Report Type: Report from Study
  Country: JP (occurrence: JP)
  Receive Date: 20240201
  Receipt Date: 20240617
  Transmission Date: 20240716
  Serious: Yes (Hospitalization, Other)
  Sender: FDA-Public Use
  Company Number: JP-HORIZON THERAPEUTICS-HZN-2023-007845

PATIENT
  Age: 48 Year
  Sex: Female
  Weight: 49.3 kg

DRUGS (46)
  1. UPLIZNA [Suspect]
     Active Substance: INEBILIZUMAB-CDON
     Indication: Neuromyelitis optica spectrum disorder
     Dosage: 300 MILLIGRAM, QD (REGIMEN 1)
     Route: 042
     Dates: start: 20221116
  2. UPLIZNA [Suspect]
     Active Substance: INEBILIZUMAB-CDON
     Dosage: 300 MILLIGRAM, QD (REGIMEN 2)
     Route: 042
     Dates: start: 20221130
  3. UPLIZNA [Suspect]
     Active Substance: INEBILIZUMAB-CDON
     Dosage: 300 MILLIGRAM, QD (REGIMEN 3)
     Route: 042
     Dates: start: 20230510
  4. UPLIZNA [Suspect]
     Active Substance: INEBILIZUMAB-CDON
     Dosage: 300 MILLIGRAM, QD (REGIMEN 4)
     Route: 042
     Dates: start: 20231122
  5. PREDONINE [Suspect]
     Active Substance: PREDNISOLONE
     Indication: Neuromyelitis optica spectrum disorder
     Dosage: 50 MILLIGRAM (REGIMEN 1)
     Route: 048
  6. PREDONINE [Suspect]
     Active Substance: PREDNISOLONE
     Dosage: UNK MILLIGRAM (20-13 MILLIGRAM REGIMEN 2)
     Route: 048
  7. PREDONINE [Suspect]
     Active Substance: PREDNISOLONE
     Dosage: 15 MILLIGRAM  (REGIMEN 3)
     Route: 048
  8. PREDONINE [Suspect]
     Active Substance: PREDNISOLONE
     Dosage: 8 MILLIGRAM (REGIMEN 4)
     Route: 048
  9. PREDONINE [Suspect]
     Active Substance: PREDNISOLONE
     Dosage: 13 MILLIGRAM, QD (REGIMEN 5)
     Route: 048
     Dates: end: 20230405
  10. PREDONINE [Suspect]
     Active Substance: PREDNISOLONE
     Dosage: 12 MILLIGRAM, QD (REGIMEN 6)
     Route: 048
     Dates: start: 20230406, end: 20230510
  11. PREDONINE [Suspect]
     Active Substance: PREDNISOLONE
     Dosage: 11 MILLIGRAM, QD (REGIMEN 7)
     Route: 048
     Dates: start: 20230511, end: 20230607
  12. PREDONINE [Suspect]
     Active Substance: PREDNISOLONE
     Dosage: 10 MILLIGRAM, QD  (REGIMEN 8)
     Route: 048
     Dates: start: 20230608, end: 20230705
  13. PREDONINE [Suspect]
     Active Substance: PREDNISOLONE
     Dosage: 9 MILLIGRAM, QD (REGIMEN 9)
     Route: 048
     Dates: start: 20230706, end: 20230802
  14. PREDONINE [Suspect]
     Active Substance: PREDNISOLONE
     Dosage: 5 MILLIGRAM, QD (REGIMEN 10)
     Route: 048
     Dates: start: 20230803, end: 20231108
  15. PREDONINE [Suspect]
     Active Substance: PREDNISOLONE
     Dosage: 7 MILLIGRAM, QD (REGIMEN 11)
     Route: 048
     Dates: start: 20231109, end: 20231205
  16. PREDONINE [Suspect]
     Active Substance: PREDNISOLONE
     Dosage: 6 MILLIGRAM, QD (REGIMEN 12)
     Route: 048
     Dates: start: 20231206, end: 20240110
  17. PREDNISOLONE [Suspect]
     Active Substance: PREDNISOLONE
     Indication: Product used for unknown indication
     Dosage: 3 MG, QD
     Route: 048
     Dates: start: 20230803, end: 20231108
  18. IMURAN [Concomitant]
     Active Substance: AZATHIOPRINE
     Indication: Neuromyelitis optica spectrum disorder
     Dosage: UNK
     Route: 065
     Dates: end: 20221116
  19. PROGRAF [Concomitant]
     Active Substance: TACROLIMUS
     Indication: Neuromyelitis optica spectrum disorder
     Dosage: UNK
     Route: 065
     Dates: end: 20221116
  20. ACETAMINOPHEN\TRAMADOL HYDROCHLORIDE [Concomitant]
     Active Substance: ACETAMINOPHEN\TRAMADOL HYDROCHLORIDE
     Indication: Neuromyelitis optica spectrum disorder
     Dosage: UNK
     Route: 065
  21. RABEPRAZOLE SODIUM [Concomitant]
     Active Substance: RABEPRAZOLE SODIUM
     Indication: Prophylaxis
     Dosage: UNK
     Route: 065
  22. AMITRIPTYLINE [Concomitant]
     Active Substance: AMITRIPTYLINE
     Indication: Neuromyelitis optica spectrum disorder
     Dosage: UNK
     Route: 065
     Dates: end: 20230814
  23. MENATETRENONE [Concomitant]
     Active Substance: MENATETRENONE
     Indication: Neuromyelitis optica spectrum disorder
     Dosage: UNK
     Route: 065
  24. MAGNESIUM OXIDE [Concomitant]
     Active Substance: MAGNESIUM OXIDE
     Indication: Neuromyelitis optica spectrum disorder
     Dosage: UNK
     Route: 065
  25. TEGRETOL [Concomitant]
     Active Substance: CARBAMAZEPINE
     Indication: Neuromyelitis optica spectrum disorder
     Dosage: UNK
     Route: 065
     Dates: end: 20230814
  26. SULFAMETHOXAZOLE\TRIMETHOPRIM [Concomitant]
     Active Substance: SULFAMETHOXAZOLE\TRIMETHOPRIM
     Indication: Neuromyelitis optica spectrum disorder
     Dosage: UNK
     Route: 065
  27. SODIUM PICOSULFATE [Concomitant]
     Active Substance: SODIUM PICOSULFATE
     Indication: Neuromyelitis optica spectrum disorder
     Dosage: UNK
     Route: 065
  28. METHYLPREDNISOLONE SODIUM SUCCINATE [Concomitant]
     Active Substance: METHYLPREDNISOLONE SODIUM SUCCINATE
     Dosage: UNK
     Route: 065
  29. SULFAMETHOXAZOLE\TRIMETHOPRIM [Concomitant]
     Active Substance: SULFAMETHOXAZOLE\TRIMETHOPRIM
     Dosage: UNK
     Route: 065
  30. ALFACALCIDOL [Concomitant]
     Active Substance: ALFACALCIDOL
     Indication: Prophylaxis
     Dosage: UNK
     Route: 065
  31. CYMBALTA [Concomitant]
     Active Substance: DULOXETINE HYDROCHLORIDE
     Dosage: UNK
     Route: 065
  32. LYRICA [Concomitant]
     Active Substance: PREGABALIN
     Dosage: UNK
     Route: 065
  33. LIORESAL [Concomitant]
     Active Substance: BACLOFEN
     Dosage: UNK
     Route: 065
  34. HERBALS [Concomitant]
     Active Substance: HERBALS
     Dosage: UNK
     Route: 065
     Dates: end: 20230814
  35. ACTONEL [Concomitant]
     Active Substance: RISEDRONATE SODIUM
     Indication: Prophylaxis
     Dosage: UNK
     Route: 065
  36. DAYVIGO [Concomitant]
     Active Substance: LEMBOREXANT
     Dosage: UNK
     Route: 065
  37. SODIUM PICOSULFATE [Concomitant]
     Active Substance: SODIUM PICOSULFATE
     Indication: Product used for unknown indication
     Dosage: UNK, ORAL SOLUTION
     Route: 048
  38. PRAVASTATIN SODIUM [Concomitant]
     Active Substance: PRAVASTATIN SODIUM
     Dosage: UNK
     Route: 065
  39. FLORINEF ACETATE [Concomitant]
     Active Substance: FLUDROCORTISONE ACETATE
     Indication: Product used for unknown indication
     Dosage: UNK
     Route: 065
  40. SODIUM FERROUS CITRATE [Concomitant]
     Active Substance: SODIUM FERROUS CITRATE
     Indication: Product used for unknown indication
     Dosage: UNK
     Route: 065
  41. KETOPROFEN [Concomitant]
     Active Substance: KETOPROFEN
     Indication: Product used for unknown indication
     Dosage: UNK
  42. FLUNITRAZEPAM [Concomitant]
     Active Substance: FLUNITRAZEPAM
     Indication: Product used for unknown indication
     Dosage: UNK
     Route: 065
  43. PREGABALIN [Concomitant]
     Active Substance: PREGABALIN
     Indication: Product used for unknown indication
     Dosage: UNK
     Route: 065
  44. DEXAMETHASONE DIPROPIONATE [Concomitant]
     Active Substance: DEXAMETHASONE DIPROPIONATE
     Indication: Product used for unknown indication
     Dosage: UNK
     Route: 065
  45. HEPARINOID [Concomitant]
     Indication: Product used for unknown indication
     Dosage: UNK
     Route: 065
  46. CALONAL [Concomitant]
     Active Substance: ACETAMINOPHEN
     Indication: Product used for unknown indication
     Dosage: UNK
     Route: 065

REACTIONS (4)
  - Paraspinal abscess [Recovered/Resolved]
  - Spinal compression fracture [Recovered/Resolved with Sequelae]
  - Foot fracture [Recovered/Resolved]
  - Off label use [Unknown]

NARRATIVE: CASE EVENT DATE: 20230725
